FAERS Safety Report 24423460 (Version 2)
Quarter: 2024Q4

REPORT INFORMATION
  Report Type: Spontaneous
  Country: US (occurrence: US)
  Receive Date: 20241010
  Receipt Date: 20241118
  Transmission Date: 20250115
  Serious: Yes (Death)
  Sender: CELLTRION
  Company Number: US-CELLTRION INC.-2024US023875

PATIENT

DRUGS (1)
  1. YUFLYMA [Suspect]
     Active Substance: ADALIMUMAB-AATY
     Indication: Product used for unknown indication
     Dosage: UNK
     Route: 058

REACTIONS (1)
  - Death [Fatal]
